FAERS Safety Report 5836503-2 (Version None)
Quarter: 2008Q3

REPORT INFORMATION
  Report Type: 
  Country: None (occurrence: None)
  Receive Date: 20080806
  Receipt Date: 20080806
  Transmission Date: 20090109
  Serious: Yes (Hospitalization)
  Sender: FDA-Public Use
  Company Number: None

PATIENT
  Age: 54 Year
  Sex: Male
  Weight: 61.36 kg

DRUGS (1)
  1. CLONIDINE [Suspect]
     Dosage: 0.2 MG BID PO
     Route: 048
     Dates: start: 20070625, end: 20080422

REACTIONS (3)
  - DYSPNOEA [None]
  - HYPERTENSION [None]
  - SYNCOPE [None]
